FAERS Safety Report 5164313-0 (Version None)
Quarter: 2006Q4

REPORT INFORMATION
  Report Type: 
  Country: None (occurrence: None)
  Receive Date: 20061127
  Receipt Date: 20061127
  Transmission Date: 20070319
  Serious: Yes (Hospitalization, Other)
  Sender: FDA-Public Use
  Company Number: None

PATIENT
  Age: 53 Year
  Sex: Female
  Weight: 100.2449 kg

DRUGS (2)
  1. LEVAQUIN [Suspect]
     Indication: STAPHYLOCOCCAL INFECTION
     Dosage: 500MG ONCE DAILY PO
     Route: 048
     Dates: start: 20061023, end: 20061101
  2. CEPHALEXIN [Suspect]
     Indication: STAPHYLOCOCCAL INFECTION
     Dosage: 500 MG EVERY 6 HOURS PO
     Route: 048
     Dates: start: 20061105, end: 20061106

REACTIONS (12)
  - ABDOMINAL PAIN [None]
  - ARTHRALGIA [None]
  - ARTHROPATHY [None]
  - BLADDER DISORDER [None]
  - BLOOD GLUCOSE INCREASED [None]
  - GASTROINTESTINAL DISORDER [None]
  - LIGAMENT DISORDER [None]
  - NAUSEA [None]
  - PAIN [None]
  - PAIN IN EXTREMITY [None]
  - TENDON PAIN [None]
  - VOMITING [None]
